FAERS Safety Report 4660571-7 (Version None)
Quarter: 2005Q2

REPORT INFORMATION
  Report Type: 
  Country: None (occurrence: None)
  Receive Date: 20050512
  Receipt Date: 20050329
  Transmission Date: 20051028
  Serious: Yes (Other)
  Sender: FDA-Public Use
  Company Number: PHRM2005FR01176

PATIENT
  Age: 76 Year
  Sex: Male
  Weight: 74 kg

DRUGS (5)
  1. TAREG [Suspect]
     Indication: HYPERTENSION
     Dosage: 160 MG, QD
     Route: 048
     Dates: start: 20031106, end: 20050330
  2. GLUCOPHAGE [Concomitant]
     Route: 048
  3. DIAMICRON [Concomitant]
     Route: 048
  4. KARDEGIC [Concomitant]
     Route: 048
  5. TEMESTA [Concomitant]
     Route: 048

REACTIONS (4)
  - AMMONIA INCREASED [None]
  - ASTHENIA [None]
  - BLOOD GLUCOSE INCREASED [None]
  - HYPONATRAEMIA [None]
